FAERS Safety Report 16979286 (Version 1)
Quarter: 2019Q4

REPORT INFORMATION
  Report Type: Spontaneous
  Country: TR (occurrence: TR)
  Receive Date: 20191031
  Receipt Date: 20191031
  Transmission Date: 20200122
  Serious: Yes (Hospitalization)
  Sender: FDA-Public Use
  Company Number: TR-SA-2019SA297805

PATIENT
  Age: 54 Year
  Sex: Female

DRUGS (3)
  1. RABEPRAZOLE [Concomitant]
     Active Substance: RABEPRAZOLE
     Dosage: 20 MG, QD
  2. LEVOTHYROXINE. [Concomitant]
     Active Substance: LEVOTHYROXINE
     Indication: HYPOTHYROIDISM
     Dosage: 50 UG, QD
  3. TERIFLUNOMIDE. [Suspect]
     Active Substance: TERIFLUNOMIDE
     Indication: MULTIPLE SCLEROSIS
     Dosage: 14 MG, QD

REACTIONS (11)
  - Lymphocytic infiltration [Recovering/Resolving]
  - Skin exfoliation [Recovering/Resolving]
  - Onycholysis [Recovering/Resolving]
  - Dermatitis psoriasiform [Recovering/Resolving]
  - Nail pitting [Recovering/Resolving]
  - Onychomadesis [Recovering/Resolving]
  - Drug eruption [Recovering/Resolving]
  - Acanthosis [Recovering/Resolving]
  - Eosinophilia [Recovering/Resolving]
  - Rash pustular [Recovering/Resolving]
  - Parakeratosis [Recovering/Resolving]
